FAERS Safety Report 4802613-1 (Version None)
Quarter: 2005Q4

REPORT INFORMATION
  Report Type: 
  Country: None (occurrence: None)
  Receive Date: 20051014
  Receipt Date: 20050404
  Transmission Date: 20060501
  Serious: Yes (Other)
  Sender: FDA-Public Use
  Company Number: 2005045073

PATIENT
  Age: 68 Year
  Sex: Female
  Weight: 56.6996 kg

DRUGS (5)
  1. NEURONTIN [Suspect]
     Indication: NEUROPATHY
     Dosage: 100 MG (100 MG, 1 IN 1 D), ORAL
     Route: 048
     Dates: start: 20010201, end: 20050308
  2. GABAPENTIN [Suspect]
     Indication: NEUROPATHY
     Dosage: ORAL
     Route: 048
     Dates: end: 20050301
  3. ESOMEPRAZOLE (ESOMEPRAZOLE) [Suspect]
     Indication: GASTROOESOPHAGEAL REFLUX DISEASE
     Dosage: ORAL
     Route: 048
     Dates: start: 20020101, end: 20050301
  4. RABEPRAZOLE SODIUM [Suspect]
     Indication: GASTROOESOPHAGEAL REFLUX DISEASE
  5. DOXYLAMINE SUCCINATE [Concomitant]

REACTIONS (13)
  - AMNESIA [None]
  - CONFUSIONAL STATE [None]
  - DEAFNESS [None]
  - DIZZINESS [None]
  - EAR PAIN [None]
  - FIBROMYALGIA [None]
  - HEART RATE INCREASED [None]
  - HYPERTENSION [None]
  - INSOMNIA [None]
  - SOMNOLENCE [None]
  - TENDONITIS [None]
  - TREMOR [None]
  - WEIGHT DECREASED [None]
